FAERS Safety Report 10094295 (Version 1)
Quarter: 2014Q2

REPORT INFORMATION
  Report Type: Spontaneous
  Country: US (occurrence: None)
  Receive Date: 20140418
  Receipt Date: 20140418
  Transmission Date: 20141212
  Serious: Yes (Death, Hospitalization)
  Sender: FDA-Public Use
  Company Number: 2014-US-004296

PATIENT
  Age: 81 Year
  Sex: Female

DRUGS (3)
  1. XYREM [Suspect]
     Indication: NARCOLEPSY
     Dates: start: 200209, end: 201403
  2. XYREM [Suspect]
     Indication: CATAPLEXY
     Dates: start: 200209, end: 201403
  3. PSYCHIATRIC MEDICATIONS [Suspect]
     Indication: PRODUCT USED FOR UNKNOWN INDICATION
     Dates: end: 201403

REACTIONS (2)
  - Unevaluable event [None]
  - Hallucination, auditory [None]
